FAERS Safety Report 6526304-4 (Version None)
Quarter: 2009Q4

REPORT INFORMATION
  Report Type: 
  Country: None (occurrence: None)
  Receive Date: 20091224
  Receipt Date: 20091204
  Transmission Date: 20100525
  Serious: Yes (Hospitalization)
  Sender: FDA-Public Use
  Company Number: 455350

PATIENT
  Age: 40 Year
  Sex: Female

DRUGS (6)
  1. FLUDARABIN HOSPIRA (FLUDARABINE) [Suspect]
     Dosage: 48 MG, 1 DAY, INTRAVENOUS
     Route: 042
     Dates: start: 20090918, end: 20090922
  2. CYCLOPHOSPHAMIDE [Concomitant]
  3. PROLEUKIN [Concomitant]
  4. MEROPENEM [Concomitant]
  5. INVESTIGATIONAL DRUG [Concomitant]
  6. TEICOPLANIN [Concomitant]

REACTIONS (4)
  - BLOOD BILIRUBIN INCREASED [None]
  - CLOSTRIDIUM DIFFICILE COLITIS [None]
  - NEUTROPENIC SEPSIS [None]
  - THROMBOCYTOPENIA [None]
